FAERS Safety Report 5504724-4 (Version None)
Quarter: 2007Q4

REPORT INFORMATION
  Report Type: 
  Country: None (occurrence: None)
  Receive Date: 20071031
  Receipt Date: 20071018
  Transmission Date: 20080405
  Serious: Yes (Other)
  Sender: FDA-Public Use
  Company Number: 17708

PATIENT
  Age: 47 Year
  Sex: Female

DRUGS (4)
  1. CARBOPLATIN [Suspect]
     Indication: OVARIAN CANCER
     Dosage: 800 MG FREQ IV
     Route: 042
     Dates: start: 20070918, end: 20070918
  2. DECITABINE [Concomitant]
  3. DEXAMETHASONE [Concomitant]
  4. GRANISETRON HCL [Concomitant]

REACTIONS (3)
  - CHEST DISCOMFORT [None]
  - PRURITUS [None]
  - RASH MACULAR [None]
